FAERS Safety Report 4389172-5 (Version None)
Quarter: 2004Q3

REPORT INFORMATION
  Report Type: 
  Country: None (occurrence: None)
  Receive Date: 20040701
  Receipt Date: 20040701
  Transmission Date: 20050211
  Serious: No
  Sender: FDA-Public Use
  Company Number: None

PATIENT
  Sex: Male
  Weight: 75 kg

DRUGS (1)
  1. MINOXIDIL [Suspect]
     Indication: HYPERTENSION
     Dosage: 10 MG QD

REACTIONS (1)
  - PERICARDIAL EFFUSION [None]
